FAERS Safety Report 9493131 (Version 3)
Quarter: 2014Q1

REPORT INFORMATION
  Report Type: Report from Study
  Country: JP (occurrence: JP)
  Receive Date: 20130902
  Receipt Date: 20140221
  Transmission Date: 20141002
  Serious: Yes (Death)
  Sender: FDA-Public Use
  Company Number: JP-ROCHE-1266942

PATIENT
  Age: 68 Year
  Sex: Male

DRUGS (1)
  1. METHOXY POLYETHYLENE GLYCOL-EPOETIN BETA [Suspect]
     Indication: NEPHROGENIC ANAEMIA
     Route: 058
     Dates: start: 20120912, end: 20120912

REACTIONS (1)
  - Acute respiratory distress syndrome [Fatal]
